FAERS Safety Report 19794383 (Version 1)
Quarter: 2021Q3

REPORT INFORMATION
  Report Type: Report from Study
  Country: US (occurrence: US)
  Receive Date: 20210906
  Receipt Date: 20210906
  Transmission Date: 20211014
  Serious: Yes (Other)
  Sender: FDA-Public Use
  Company Number: US-SA-2021SA134760

PATIENT
  Age: 63 Year
  Sex: Male

DRUGS (4)
  1. DUPILUMAB [Suspect]
     Active Substance: DUPILUMAB
     Indication: DERMATITIS ATOPIC
     Dosage: 600 MG, 1X
     Route: 058
     Dates: start: 20210402, end: 20210402
  2. TACROLIMUS. [Concomitant]
     Active Substance: TACROLIMUS
  3. TACROLIMUS. [Concomitant]
     Active Substance: TACROLIMUS
  4. DUPILUMAB [Suspect]
     Active Substance: DUPILUMAB
     Dosage: 300 MG, QOW
     Route: 058
     Dates: start: 20210416

REACTIONS (14)
  - Skin discolouration [Recovered/Resolved]
  - Injection site pain [Not Recovered/Not Resolved]
  - Sensory disturbance [Recovered/Resolved]
  - COVID-19 [Not Recovered/Not Resolved]
  - Eye contusion [Recovered/Resolved]
  - Ageusia [Not Recovered/Not Resolved]
  - Head injury [Unknown]
  - Skin exfoliation [Recovered/Resolved]
  - Pruritus [Not Recovered/Not Resolved]
  - Fall [Unknown]
  - Decreased appetite [Not Recovered/Not Resolved]
  - Sputum discoloured [Unknown]
  - Systemic lupus erythematosus [Unknown]
  - Dyspnoea [Recovering/Resolving]

NARRATIVE: CASE EVENT DATE: 2021
